FAERS Safety Report 18223048 (Version 2)
Quarter: 2020Q3

REPORT INFORMATION
  Report Type: Other
  Country: JP (occurrence: JP)
  Receive Date: 20200902
  Receipt Date: 20200910
  Transmission Date: 20201103
  Serious: Yes (Other)
  Sender: FDA-Public Use
  Company Number: JP-ROCHE-2668983

PATIENT
  Age: 65 Year
  Sex: Female

DRUGS (1)
  1. TECENTRIQ [Suspect]
     Active Substance: ATEZOLIZUMAB
     Indication: NEUROENDOCRINE CARCINOMA
     Route: 041

REACTIONS (3)
  - Metastases to central nervous system [Unknown]
  - Off label use [Unknown]
  - Intentional product use issue [Unknown]
